FAERS Safety Report 6453047-8 (Version None)
Quarter: 2009Q4

REPORT INFORMATION
  Report Type: 
  Country: None (occurrence: None)
  Receive Date: 20091124
  Receipt Date: 20090803
  Transmission Date: 20100525
  Serious: No
  Sender: FDA-Public Use
  Company Number: US-ABBOTT-09P-163-0589823-00

PATIENT
  Sex: Female
  Weight: 87.168 kg

DRUGS (10)
  1. TRICOR [Suspect]
     Indication: BLOOD CHOLESTEROL INCREASED
     Route: 048
     Dates: end: 20090701
  2. TRICOR [Suspect]
     Indication: BLOOD TRIGLYCERIDES INCREASED
  3. LOVAZA [Suspect]
     Indication: BLOOD CHOLESTEROL INCREASED
     Route: 048
     Dates: end: 20090701
  4. LEVAQUIN [Suspect]
     Indication: DRUG USE FOR UNKNOWN INDICATION
     Dates: end: 20090701
  5. DIOVAN [Suspect]
     Indication: HYPERTENSION
     Route: 048
     Dates: end: 20090701
  6. CARVEDILOL [Suspect]
     Indication: HYPERTENSION
     Route: 048
     Dates: end: 20090701
  7. HYDROCHLOROTHIAZIDE [Suspect]
     Indication: HYPERTENSION
     Route: 048
  8. ZETIA [Concomitant]
     Indication: BLOOD CHOLESTEROL INCREASED
     Route: 048
  9. ATENOLOL [Concomitant]
     Indication: HYPERTENSION
     Route: 048
  10. FIVE OTHER UNKNOWN MEDICATIONS [Concomitant]
     Indication: DRUG USE FOR UNKNOWN INDICATION

REACTIONS (8)
  - COUGH [None]
  - EYE HAEMORRHAGE [None]
  - MYALGIA [None]
  - OEDEMA PERIPHERAL [None]
  - SENSORY DISTURBANCE [None]
  - SINUS DISORDER [None]
  - VISUAL IMPAIRMENT [None]
  - WEIGHT INCREASED [None]
